FAERS Safety Report 13442131 (Version 2)
Quarter: 2017Q2

REPORT INFORMATION
  Report Type: Spontaneous
  Country: FR (occurrence: FR)
  Receive Date: 20170414
  Receipt Date: 20170509
  Transmission Date: 20170830
  Serious: Yes (Other)
  Sender: FDA-Public Use
  Company Number: FR-PFIZER INC-2017156418

PATIENT
  Age: 19 Year
  Sex: Female

DRUGS (2)
  1. CYTOTEC [Suspect]
     Active Substance: MISOPROSTOL
     Indication: ABORTION INDUCED
     Dosage: 400 UG, DAILY
     Route: 048
     Dates: start: 19951007, end: 19951007
  2. MIFEGYNE [Suspect]
     Active Substance: MIFEPRISTONE
     Indication: ABORTION INDUCED
     Dosage: 600 MG, DAILY
     Route: 048
     Dates: start: 19951005, end: 19951005

REACTIONS (2)
  - Product use in unapproved indication [Unknown]
  - Endometritis [Unknown]

NARRATIVE: CASE EVENT DATE: 1995
